FAERS Safety Report 8327190 (Version 2)
Quarter: 2013Q1

REPORT INFORMATION
  Report Type: Spontaneous
  Country: US (occurrence: US)
  Receive Date: 20120109
  Receipt Date: 20130206
  Transmission Date: 20140127
  Serious: Yes (Other)
  Sender: FDA-Public Use
  Company Number: US-PFIZER INC-2012004245

PATIENT
  Sex: Female

DRUGS (4)
  1. LIPITOR [Suspect]
     Indication: BLOOD CHOLESTEROL INCREASED
     Dosage: UNK, 1X/DAY
     Route: 048
  2. CELEBREX [Suspect]
     Dosage: UNK, 1X/DAY
  3. PREMPRO [Suspect]
     Indication: POSTMENOPAUSE
     Dosage: UNK
  4. EFFEXOR [Suspect]
     Dosage: UNK, 1X/DAY

REACTIONS (5)
  - Cardiac operation [Unknown]
  - Limb operation [Unknown]
  - Blood cholesterol increased [Unknown]
  - Fall [Unknown]
  - Upper limb fracture [Unknown]
